FAERS Safety Report 6940574-X (Version None)
Quarter: 2010Q3

REPORT INFORMATION
  Report Type: 
  Country: None (occurrence: None)
  Receive Date: 20100825
  Receipt Date: 20100819
  Transmission Date: 20110219
  Serious: Yes (Hospitalization)
  Sender: FDA-Public Use
  Company Number: FR-BAYER-201036600GPV

PATIENT
  Age: 63 Year
  Sex: Male

DRUGS (2)
  1. CIFLOX [Suspect]
     Dosage: UNIT DOSE: 400 MG
     Route: 042
     Dates: end: 20100730
  2. FORTUM [Concomitant]

REACTIONS (2)
  - CATHETER SITE HAEMORRHAGE [None]
  - THROMBOCYTOPENIA [None]
